FAERS Safety Report 9537978 (Version 4)
Quarter: 2014Q3

REPORT INFORMATION
  Report Type: Report from Study
  Country: GB (occurrence: GB)
  Receive Date: 20130919
  Receipt Date: 20140826
  Transmission Date: 20150326
  Serious: Yes (Other)
  Sender: FDA-Public Use
  Company Number: GB-ROCHE-1275593

PATIENT
  Age: 60 Year
  Sex: Male
  Weight: 79 kg

DRUGS (7)
  1. CRYOTHERAPY [Concomitant]
     Route: 061
     Dates: start: 201212, end: 20121231
  2. METRONIDAZOLE. [Concomitant]
     Active Substance: METRONIDAZOLE
     Route: 048
     Dates: start: 20140407
  3. DALACIN [Concomitant]
     Active Substance: CLINDAMYCIN\CLINDAMYCIN PHOSPHATE
     Route: 061
     Dates: start: 20121210, end: 20130606
  4. DERMOVATE CREAM [Concomitant]
     Route: 061
     Dates: start: 20130606
  5. OMEPRAZOLE. [Concomitant]
     Active Substance: OMEPRAZOLE
     Route: 048
     Dates: start: 20130911
  6. VEMURAFENIB [Suspect]
     Active Substance: VEMURAFENIB
     Indication: MALIGNANT MELANOMA
     Dosage: LAST DOSE PRIOR TO SAE WAS ON 10/SEP/2013
     Route: 048
     Dates: start: 20121122
  7. FUCIBET [Concomitant]
     Route: 061
     Dates: start: 20130606

REACTIONS (2)
  - Papilloedema [Recovering/Resolving]
  - Uveitis [Recovering/Resolving]

NARRATIVE: CASE EVENT DATE: 20130910
